FAERS Safety Report 5725323-5 (Version None)
Quarter: 2008Q2

REPORT INFORMATION
  Report Type: 
  Country: None (occurrence: None)
  Receive Date: 20080501
  Receipt Date: 20080424
  Transmission Date: 20081010
  Serious: Yes (Other)
  Sender: FDA-Public Use
  Company Number: BR-PFIZER INC-2007091848

PATIENT
  Age: 70 Year
  Sex: Female

DRUGS (2)
  1. XALATAN [Suspect]
     Indication: GLAUCOMA
     Route: 047
  2. PURAN T4 [Concomitant]
     Route: 048

REACTIONS (3)
  - CATARACT [None]
  - EYE DISORDER [None]
  - GLAUCOMA [None]
